FAERS Safety Report 6102867-8 (Version None)
Quarter: 2009Q1

REPORT INFORMATION
  Report Type: 
  Country: None (occurrence: None)
  Receive Date: 20090304
  Receipt Date: 20090224
  Transmission Date: 20090719
  Serious: Yes (Other)
  Sender: FDA-Public Use
  Company Number: ZA-JNJCH-2009005355

PATIENT
  Sex: Female

DRUGS (1)
  1. NICORETTE [Suspect]
     Indication: SMOKING CESSATION THERAPY
     Dosage: TEXT:UNSPECIFIED
     Route: 062

REACTIONS (5)
  - BACK PAIN [None]
  - CHEST DISCOMFORT [None]
  - COUGH [None]
  - DYSPNOEA [None]
  - NICOTINE DEPENDENCE [None]
